FAERS Safety Report 15659919 (Version 2)
Quarter: 2019Q1

REPORT INFORMATION
  Report Type: Spontaneous
  Country: US (occurrence: US)
  Receive Date: 20181127
  Receipt Date: 20190129
  Transmission Date: 20190417
  Serious: No
  Sender: FDA-Public Use
  Company Number: US-TEVA-2018-US-978672

PATIENT
  Age: 56 Year
  Sex: Female

DRUGS (7)
  1. PENTASA [Concomitant]
     Active Substance: MESALAMINE
  2. PREVACID [Concomitant]
     Active Substance: LANSOPRAZOLE
  3. WELLBUTRIN [Concomitant]
     Active Substance: BUPROPION HYDROCHLORIDE
  4. CELECOXIB. [Concomitant]
     Active Substance: CELECOXIB
  5. GABAPENTIN. [Concomitant]
     Active Substance: GABAPENTIN
  6. COPAXONE [Suspect]
     Active Substance: GLATIRAMER ACETATE
     Route: 065
  7. TRAZODONE [Concomitant]
     Active Substance: TRAZODONE HYDROCHLORIDE

REACTIONS (8)
  - Lip swelling [Unknown]
  - Spinal pain [Recovered/Resolved]
  - Hypersensitivity [Unknown]
  - Vomiting [Unknown]
  - Chest discomfort [Unknown]
  - Dizziness [Recovered/Resolved]
  - Flushing [Recovered/Resolved]
  - Muscle tightness [Unknown]
